FAERS Safety Report 8558798-7 (Version None)
Quarter: 2012Q3

REPORT INFORMATION
  Report Type: 
  Country: None (occurrence: None)
  Receive Date: 20120801
  Receipt Date: 20120730
  Transmission Date: 20120928
  Serious: Yes (Other)
  Sender: FDA-Public Use
  Company Number: BR-009507513-1207BRA013030

PATIENT

DRUGS (3)
  1. DESLORATADINE [Suspect]
     Indication: THROAT IRRITATION
     Dosage: 5 MG, QD
     Route: 048
     Dates: start: 20120724, end: 20120729
  2. NASONEX [Suspect]
     Indication: THROAT IRRITATION
     Dosage: UNK UNK, QD
     Dates: start: 20120724
  3. VERTIX [Concomitant]
     Indication: MIGRAINE
     Dosage: 5 MG, QD
     Route: 048

REACTIONS (5)
  - DRY MOUTH [None]
  - EAR PAIN [None]
  - HEADACHE [None]
  - LOSS OF CONSCIOUSNESS [None]
  - THERAPY CESSATION [None]
